FAERS Safety Report 9833650 (Version 1)
Quarter: 2014Q1

REPORT INFORMATION
  Report Type: Spontaneous
  Country: US (occurrence: US)
  Receive Date: 20140122
  Receipt Date: 20140122
  Transmission Date: 20141002
  Serious: No
  Sender: FDA-Public Use
  Company Number: US-BIOGENIDEC-2014BI000581

PATIENT
  Age: 54 Year
  Sex: Female

DRUGS (5)
  1. AVONEX [Suspect]
     Indication: MULTIPLE SCLEROSIS
     Route: 030
     Dates: start: 20120620
  2. AVONEX [Suspect]
     Indication: MULTIPLE SCLEROSIS
     Route: 030
     Dates: start: 201207
  3. VALIUM [Concomitant]
     Indication: IRRITABILITY
  4. VALIUM [Concomitant]
     Indication: ANXIETY
  5. VICODIN [Concomitant]
     Indication: BACK PAIN

REACTIONS (1)
  - Injection site mass [Not Recovered/Not Resolved]
